FAERS Safety Report 7090244-5 (Version None)
Quarter: 2010Q4

REPORT INFORMATION
  Report Type: 
  Country: None (occurrence: None)
  Receive Date: 20101109
  Receipt Date: 20101027
  Transmission Date: 20110411
  Serious: Yes (Other)
  Sender: FDA-Public Use
  Company Number: GB-ASTRAZENECA-2010SE50966

PATIENT
  Age: 83 Year
  Sex: Female

DRUGS (7)
  1. OMEPRAZOLE [Suspect]
     Indication: DYSPEPSIA
     Route: 048
     Dates: end: 20101017
  2. CITALOPRAM HYDROBROMIDE [Interacting]
     Indication: ANXIETY
     Route: 048
  3. BENDROFLUAZIDE [Concomitant]
     Indication: HYPERTENSION
     Route: 048
  4. CIPROFLOXACIN [Concomitant]
     Indication: INFECTION
     Route: 048
     Dates: start: 20101014
  5. FLECAINIDE ACETATE [Concomitant]
     Indication: ARRHYTHMIA
     Route: 048
  6. NULYTELY [Concomitant]
     Indication: CONSTIPATION
     Route: 048
     Dates: start: 20101014
  7. ZOPICLONE [Concomitant]
     Indication: ANXIETY
     Route: 048

REACTIONS (2)
  - ANGIOEDEMA [None]
  - DRUG INTERACTION [None]
